FAERS Safety Report 10957903 (Version 1)
Quarter: 2015Q1

REPORT INFORMATION
  Report Type: Report from Study
  Country: US (occurrence: US)
  Receive Date: 20150326
  Receipt Date: 20150326
  Transmission Date: 20150721
  Serious: Yes (Hospitalization)
  Sender: FDA-Public Use
  Company Number: US-ACTELION-A-US2015-115096

PATIENT
  Age: 55 Year
  Sex: Male

DRUGS (2)
  1. OXYGEN. [Concomitant]
     Active Substance: OXYGEN
  2. MACITENTAN [Suspect]
     Active Substance: MACITENTAN
     Indication: PULMONARY HYPERTENSION
     Dosage: 10 MG, QD
     Route: 048
     Dates: start: 201404

REACTIONS (8)
  - Dyspnoea [Recovering/Resolving]
  - Choking [Recovering/Resolving]
  - Lung infection [Recovering/Resolving]
  - Chest pain [Recovering/Resolving]
  - Epistaxis [Recovered/Resolved]
  - Wound haemorrhage [Recovered/Resolved]
  - Productive cough [Recovering/Resolving]
  - Scratch [Recovered/Resolved]

NARRATIVE: CASE EVENT DATE: 201502
